FAERS Safety Report 9085228 (Version 1)
Quarter: 2013Q1

REPORT INFORMATION
  Report Type: Report from Study
  Country: US (occurrence: US)
  Receive Date: 20130131
  Receipt Date: 20130131
  Transmission Date: 20140127
  Serious: No
  Sender: FDA-Public Use
  Company Number: US-ABBOTT-12P-163-1002828-00

PATIENT
  Age: 76 Year
  Sex: Female

DRUGS (22)
  1. HUMIRA [Suspect]
     Dates: start: 20121012
  2. PLAQUENIL [Concomitant]
     Indication: RHEUMATOID ARTHRITIS
  3. METHOTREXATE [Concomitant]
     Indication: RHEUMATOID ARTHRITIS
     Dosage: 2.5 MG X 8 PILLS WEEKLY
  4. VICODIN [Concomitant]
     Indication: PAIN
     Dosage: 2 - 3 PILLS DAILY AS NEEDED
  5. FENTANYL PATCH [Concomitant]
     Indication: PRODUCT USED FOR UNKNOWN INDICATION
  6. TEKTURNA [Concomitant]
     Indication: BLOOD PRESSURE
     Dosage: 150 MG DAILY
  7. BYSTOLIC [Concomitant]
     Indication: BLOOD PRESSURE
     Dosage: 5 MG DAILY
  8. GABAPENTIN [Concomitant]
     Indication: PAIN IN EXTREMITY
  9. BIOTIN [Concomitant]
     Indication: ALOPECIA
     Dosage: 1000 MG DAILY
  10. AMITRIPYLINE [Concomitant]
     Indication: INSOMNIA
     Dosage: 50 MG DAILY
  11. AMITRIPTYLINE [Concomitant]
     Indication: INSOMNIA
     Dosage: 50 MG DAILY
  12. IRON [Concomitant]
     Indication: BLOOD IRON DECREASED
     Dosage: 65 MG DAILY
  13. SINGULAIR [Concomitant]
     Indication: PRODUCT USED FOR UNKNOWN INDICATION
     Dosage: 10 MG DAILY
  14. UNKNOWN EYE DROPS [Concomitant]
     Indication: GLAUCOMA
  15. OMEPRAZOLE [Concomitant]
     Indication: EPIGASTRIC DISCOMFORT
     Dosage: DAILY
  16. LACTULOSE [Concomitant]
     Indication: BOWEL MOVEMENT IRREGULARITY
     Dosage: DAILY
  17. VEGETABLE LAXATIVE [Concomitant]
     Indication: BOWEL MOVEMENT IRREGULARITY
     Dosage: DAILY
  18. STOOL SOFTENER [Concomitant]
     Indication: BOWEL MOVEMENT IRREGULARITY
     Dosage: DAILY
  19. FISH OIL [Concomitant]
     Indication: PRODUCT USED FOR UNKNOWN INDICATION
     Dosage: 1000 MG DAILY
  20. VITAMIN D [Concomitant]
     Indication: PRODUCT USED FOR UNKNOWN INDICATION
     Dosage: 2000 UNITS DAILY
  21. MULTIVITAMIN ENTRUM SILVER [Concomitant]
     Indication: PRODUCT USED FOR UNKNOWN INDICATION
  22. FOLIC ACID [Concomitant]
     Indication: PRODUCT USED FOR UNKNOWN INDICATION
     Dosage: 1 MG DAILY

REACTIONS (4)
  - Eye disorder [Not Recovered/Not Resolved]
  - Injection site pain [Not Recovered/Not Resolved]
  - Injection site bruising [Not Recovered/Not Resolved]
  - Injection site haemorrhage [Not Recovered/Not Resolved]
